FAERS Safety Report 4577048-X (Version None)
Quarter: 2005Q1

REPORT INFORMATION
  Report Type: 
  Country: None (occurrence: None)
  Receive Date: 20050210
  Receipt Date: 20041201
  Transmission Date: 20050727
  Serious: Yes (Hospitalization)
  Sender: FDA-Public Use
  Company Number: FR-SANOFI-SYNTHELABO-A02200403735

PATIENT
  Age: 24 Year
  Sex: Male
  Weight: 51 kg

DRUGS (2)
  1. ELOXATIN [Suspect]
     Indication: HEPATIC NEOPLASM MALIGNANT
     Route: 042
     Dates: start: 20040314, end: 20040314
  2. XELODA [Suspect]
     Route: 048
     Dates: start: 20040313, end: 20040326

REACTIONS (1)
  - BACK PAIN [None]
